FAERS Safety Report 22197139 (Version 1)
Quarter: 2023Q2

REPORT INFORMATION
  Report Type: Spontaneous
  Country: US (occurrence: None)
  Receive Date: 20230410
  Receipt Date: 20230410
  Transmission Date: 20230721
  Serious: Yes (Other)
  Sender: FDA-Public Use
  Company Number: None

PATIENT
  Age: 83 Year
  Sex: Female

DRUGS (2)
  1. WARFARIN [Suspect]
     Active Substance: WARFARIN
     Dosage: FREQUENCY : DAILY;?
     Route: 048
     Dates: start: 20220326, end: 20220416
  2. ENOXAPARIN [Suspect]
     Active Substance: ENOXAPARIN
     Dosage: FREQUENCY : TWICE A DAY;?
     Route: 058
     Dates: start: 20220406, end: 20220416

REACTIONS (5)
  - Altered state of consciousness [None]
  - Unresponsive to stimuli [None]
  - Ischaemic stroke [None]
  - Cerebellar haemorrhage [None]
  - Brain death [None]

NARRATIVE: CASE EVENT DATE: 20220416
